FAERS Safety Report 7859462-X (Version None)
Quarter: 2011Q4

REPORT INFORMATION
  Report Type: 
  Country: None (occurrence: None)
  Receive Date: 20111027
  Receipt Date: 20111019
  Transmission Date: 20120403
  Serious: Yes (Death)
  Sender: FDA-Public Use
  Company Number: JP-SANOFI-AVENTIS-2011SA024591

PATIENT
  Age: 85 Year
  Sex: Male

DRUGS (3)
  1. DEXAMETHASONE [Concomitant]
     Indication: PROSTATE CANCER METASTATIC
  2. DOCETAXEL [Suspect]
     Indication: PROSTATE CANCER METASTATIC
     Route: 042
  3. ALL OTHER THERAPEUTIC PRODUCTS [Concomitant]
     Indication: PROSTATE CANCER METASTATIC

REACTIONS (3)
  - SEPSIS [None]
  - FEBRILE NEUTROPENIA [None]
  - DISSEMINATED INTRAVASCULAR COAGULATION [None]
